FAERS Safety Report 18038751 (Version 1)
Quarter: 2020Q3

REPORT INFORMATION
  Report Type: Spontaneous
  Country: US (occurrence: US)
  Receive Date: 20200718
  Receipt Date: 20200718
  Transmission Date: 20201103
  Serious: Yes (Other)
  Sender: FDA-Public Use
  Company Number: US-DENTSPLY-2020SCDP000228

PATIENT
  Age: 11 Month
  Sex: Female

DRUGS (1)
  1. LIDOCAINE. [Suspect]
     Active Substance: LIDOCAINE
     Indication: RASH
     Dosage: TOPICAL 4% LIDOCAINE CREAM
     Route: 061

REACTIONS (2)
  - Status epilepticus [Recovered/Resolved]
  - Local anaesthetic systemic toxicity [Unknown]
